FAERS Safety Report 7464036-9 (Version None)
Quarter: 2011Q2

REPORT INFORMATION
  Report Type: 
  Country: None (occurrence: None)
  Receive Date: 20110506
  Receipt Date: 20101123
  Transmission Date: 20111010
  Serious: No
  Sender: FDA-Public Use
  Company Number: US-BAYER-2010-005155

PATIENT
  Age: 45 Year
  Sex: Female

DRUGS (1)
  1. AVELOX [Suspect]
     Indication: RESPIRATORY TRACT INFECTION
     Dosage: 400 MG, QD
     Route: 048
     Dates: start: 20101101, end: 20101101

REACTIONS (3)
  - ERYTHEMA [None]
  - PARAESTHESIA ORAL [None]
  - HYPERSENSITIVITY [None]
